FAERS Safety Report 9379197 (Version 2)
Quarter: 2013Q3

REPORT INFORMATION
  Report Type: Spontaneous
  Country: US (occurrence: US)
  Receive Date: 20130702
  Receipt Date: 20130726
  Transmission Date: 20140515
  Serious: Yes (Hospitalization)
  Sender: FDA-Public Use
  Company Number: US-ASTELLAS-2013US006845

PATIENT
  Age: 3 Year
  Sex: Male

DRUGS (3)
  1. PROGRAF [Suspect]
     Indication: LIVER TRANSPLANT
     Dosage: 1 MG, UID/QD
     Route: 048
     Dates: start: 20111112
  2. PROGRAF [Suspect]
     Dosage: 1 MG EVERY OTHER PM
     Route: 048
     Dates: start: 20111123
  3. PROGRAF [Suspect]
     Dosage: .5 MG EVERY OTHER PM
     Route: 048
     Dates: start: 20111123

REACTIONS (2)
  - Respiratory distress [Recovered/Resolved]
  - Liver function test abnormal [Recovered/Resolved]
